FAERS Safety Report 4507542-9 (Version None)
Quarter: 2004Q4

REPORT INFORMATION
  Report Type: 
  Country: None (occurrence: None)
  Receive Date: 20041018
  Receipt Date: 20040827
  Transmission Date: 20050328
  Serious: No
  Sender: FDA-Public Use
  Company Number: 208722

PATIENT
  Age: 44 Year
  Sex: Female
  Weight: 76.2 kg

DRUGS (3)
  1. XOLAIR [Suspect]
     Indication: ASTHMA
     Dosage: 300 MG, Q2W, SUBCUTANEOUS
     Route: 058
     Dates: start: 20040728
  2. ZITHROMAX [Concomitant]
  3. MINOCYCLINE HCL [Concomitant]

REACTIONS (3)
  - ALOPECIA [None]
  - BACTERIAL INFECTION [None]
  - URTICARIA [None]
